FAERS Safety Report 13770238 (Version 2)
Quarter: 2017Q3

REPORT INFORMATION
  Report Type: Spontaneous
  Country: US (occurrence: US)
  Receive Date: 20170719
  Receipt Date: 20170728
  Transmission Date: 20171127
  Serious: No
  Sender: FDA-Public Use
  Company Number: US-BIOGEN-2017BI00431547

PATIENT
  Sex: Female

DRUGS (1)
  1. AVONEX [Suspect]
     Active Substance: INTERFERON BETA-1A
     Indication: MULTIPLE SCLEROSIS
     Route: 065
     Dates: start: 20080627

REACTIONS (6)
  - Decreased appetite [Unknown]
  - Chills [Recovered/Resolved]
  - Motor dysfunction [Unknown]
  - Asthenia [Recovered/Resolved]
  - Mobility decreased [Unknown]
  - Confusional state [Recovered/Resolved]
